FAERS Safety Report 6742442-5 (Version None)
Quarter: 2010Q2

REPORT INFORMATION
  Report Type: 
  Country: None (occurrence: None)
  Receive Date: 20100526
  Receipt Date: 20100520
  Transmission Date: 20101027
  Serious: Yes (Hospitalization)
  Sender: FDA-Public Use
  Company Number: US-JNJFOC-20100508248

PATIENT
  Age: 19 Month
  Sex: Male
  Weight: 11.34 kg

DRUGS (4)
  1. CHILDREN'S TYLENOL SUSPENSION [Suspect]
     Indication: NASOPHARYNGITIS
     Route: 048
  2. CHILDREN'S TYLENOL SUSPENSION [Suspect]
     Indication: PYREXIA
     Route: 048
  3. OMNICEF [Suspect]
     Indication: NASOPHARYNGITIS
     Route: 048
  4. OMNICEF [Suspect]
     Indication: PYREXIA
     Route: 048

REACTIONS (2)
  - PRODUCT QUALITY ISSUE [None]
  - RASH [None]
